FAERS Safety Report 8933608 (Version 1)
Quarter: 2012Q4

REPORT INFORMATION
  Report Type: 
  Country: HU (occurrence: HU)
  Receive Date: 20121129
  Receipt Date: 20121129
  Transmission Date: 20130627
  Serious: Yes (Life-Threatening, Hospitalization, Disabling)
  Sender: FDA-Public Use
  Company Number: HU-ROCHE-1161844

PATIENT
  Age: 79 Year
  Sex: Male

DRUGS (7)
  1. ACTILYSE [Suspect]
     Indication: PRODUCT USED FOR UNKNOWN INDICATION
     Route: 042
     Dates: start: 20121015, end: 20121016
  2. ASTRIX [Concomitant]
     Indication: CORONARY ANGIOPLASTY
     Route: 065
  3. CLOPIDOGREL [Concomitant]
     Indication: CORONARY ANGIOPLASTY
     Route: 065
  4. NOOTROPIL [Concomitant]
     Indication: DIZZINESS
     Route: 065
  5. BETALOC [Concomitant]
     Indication: HYPERTENSION
     Route: 065
  6. COVEREX [Concomitant]
     Indication: HYPERTENSION
     Route: 065
  7. XETER [Concomitant]
     Indication: HYPERLIPIDAEMIA
     Route: 065

REACTIONS (1)
  - Haematemesis [Recovered/Resolved]
